FAERS Safety Report 4877597-0 (Version None)
Quarter: 2006Q1

REPORT INFORMATION
  Report Type: 
  Country: None (occurrence: None)
  Receive Date: 20060109
  Receipt Date: 20060102
  Transmission Date: 20060701
  Serious: Yes (Congenital Anomaly)
  Sender: FDA-Public Use
  Company Number: 2004-03-1277

PATIENT
  Age: 12 Month

DRUGS (2)
  1. PEG-INTRON [Suspect]
     Indication: HEPATITIS C
     Dosage: 96 MCG, SUBCUTANEOUS
     Route: 058
     Dates: start: 20020620, end: 20030912
  2. REBETOL [Suspect]
     Indication: HEPATITIS C
     Dosage: 1000 MG QD, ORAL
     Route: 048
     Dates: start: 20020920, end: 20030912

REACTIONS (3)
  - CAESAREAN SECTION [None]
  - DRUG EXPOSURE BEFORE PREGNANCY [None]
  - PLAGIOCEPHALY [None]
